FAERS Safety Report 16631504 (Version 1)
Quarter: 2019Q3

REPORT INFORMATION
  Report Type: Spontaneous
  Country: JP (occurrence: JP)
  Receive Date: 20190725
  Receipt Date: 20190725
  Transmission Date: 20191004
  Serious: Yes (Other)
  Sender: FDA-Public Use
  Company Number: JP-ELI_LILLY_AND_COMPANY-JP201907011001

PATIENT
  Age: 62 Year
  Sex: Female

DRUGS (4)
  1. FEBURIC [Concomitant]
     Active Substance: FEBUXOSTAT
  2. LOSARTAN K [Concomitant]
     Active Substance: LOSARTAN POTASSIUM
  3. FORTEO [Suspect]
     Active Substance: TERIPARATIDE
     Indication: OSTEOPOROSIS
     Dosage: 200 UG, DAILY
     Route: 058
     Dates: start: 20170614, end: 20190718
  4. AZELNIDIPINE [Concomitant]
     Active Substance: AZELNIDIPINE

REACTIONS (1)
  - Lymphoma [Unknown]

NARRATIVE: CASE EVENT DATE: 201907
